FAERS Safety Report 7377770-6 (Version None)
Quarter: 2011Q1

REPORT INFORMATION
  Report Type: 
  Country: None (occurrence: None)
  Receive Date: 20110316
  Receipt Date: 20110307
  Transmission Date: 20110831
  Serious: No
  Sender: FDA-Public Use
  Company Number: 028837

PATIENT
  Age: 33 Year
  Sex: Female

DRUGS (1)
  1. KEPPRA [Suspect]
     Dosage: 750 MG BID

REACTIONS (2)
  - INAPPROPRIATE SCHEDULE OF DRUG ADMINISTRATION [None]
  - ALOPECIA [None]
